FAERS Safety Report 16760767 (Version 1)
Quarter: 2019Q4

REPORT INFORMATION
  Report Type: Spontaneous
  Country: US (occurrence: US)
  Receive Date: 20190830
  Receipt Date: 20190830
  Transmission Date: 20200122
  Serious: Yes (Hospitalization)
  Sender: FDA-Public Use
  Company Number: None

PATIENT
  Age: 72 Year
  Sex: Male

DRUGS (7)
  1. ALLOPURINOL. [Concomitant]
     Active Substance: ALLOPURINOL
  2. ASPIRIN. [Concomitant]
     Active Substance: ASPIRIN
  3. TACROLIMUS. [Suspect]
     Active Substance: TACROLIMUS
     Indication: HEART TRANSPLANT
     Route: 048
  4. SIROLIMUS. [Concomitant]
     Active Substance: SIROLIMUS
  5. LOSARTAN. [Concomitant]
     Active Substance: LOSARTAN
  6. PEPCID [Concomitant]
     Active Substance: FAMOTIDINE
  7. DILTIAZEM. [Concomitant]
     Active Substance: DILTIAZEM

REACTIONS (1)
  - Eye infection [None]
